FAERS Safety Report 9737928 (Version 2)
Quarter: 2013Q4

REPORT INFORMATION
  Report Type: Spontaneous
  Country: US (occurrence: US)
  Receive Date: 20131208
  Receipt Date: 20131208
  Transmission Date: 20140711
  Serious: No
  Sender: FDA-Public Use
  Company Number: -SAAVPROD-RENA-1001935

PATIENT
  Sex: Female

DRUGS (2)
  1. SEVELAMER CARBONATE [Suspect]
     Indication: PRODUCT USED FOR UNKNOWN INDICATION
     Dosage: 7.2 G, QD (3 TABLETS WITH MEALS)
     Route: 048
  2. SEVELAMER CARBONATE [Suspect]
     Indication: PRODUCT USED FOR UNKNOWN INDICATION
     Dosage: 4.8 G, QD (2 TABLETS WITH MEALS)
     Route: 048

REACTIONS (1)
  - Diarrhoea [Not Recovered/Not Resolved]
